FAERS Safety Report 9133508 (Version 1)
Quarter: 2013Q1

REPORT INFORMATION
  Report Type: Spontaneous
  Country: BR (occurrence: BR)
  Receive Date: 20130116
  Receipt Date: 20130116
  Transmission Date: 20140127
  Serious: Yes (Other)
  Sender: FDA-Public Use
  Company Number: BR-AMGEN-BRASP2012023456

PATIENT
  Age: 53 Year
  Sex: Female
  Weight: 65 kg

DRUGS (9)
  1. ENBREL [Suspect]
     Indication: RHEUMATOID ARTHRITIS
     Dosage: 50 MG, ONCE WEEKLY
     Route: 058
     Dates: end: 201212
  2. ENBREL [Suspect]
     Dosage: 50 MG, ONCE WEEKLY
     Route: 058
     Dates: start: 201012
  3. CRANBERRY                          /01512301/ [Concomitant]
     Dosage: UNK
  4. ARAVA [Concomitant]
     Dosage: UNK
  5. LEXAPRO [Concomitant]
     Dosage: UNK
  6. OLMETEC [Concomitant]
     Indication: HYPERTENSION
     Dosage: 20 MG, 1X/DAY
  7. RIVOTRIL [Concomitant]
     Indication: DEPRESSION
     Dosage: 3 DROPS ONCE A DAY
  8. AAS [Concomitant]
     Indication: DEPRESSION
     Dosage: 6 MG, 2X/DAY
  9. LORAX                              /00273201/ [Concomitant]
     Indication: DEPRESSION
     Dosage: 20 MG, UNK

REACTIONS (4)
  - Immunosuppression [Unknown]
  - Vulvovaginal discomfort [Not Recovered/Not Resolved]
  - Pain in extremity [Not Recovered/Not Resolved]
  - Drug ineffective [Not Recovered/Not Resolved]
